FAERS Safety Report 5528861-3 (Version None)
Quarter: 2007Q4

REPORT INFORMATION
  Report Type: 
  Country: None (occurrence: None)
  Receive Date: 20071113
  Receipt Date: 20070828
  Transmission Date: 20080405
  Serious: No
  Sender: FDA-Public Use
  Company Number: 200714999US

PATIENT
  Age: 66 Year
  Sex: Female

DRUGS (15)
  1. APIDRA [Suspect]
     Indication: TYPE 2 DIABETES MELLITUS
     Dates: start: 20070606
  2. OPTICLIK [Suspect]
     Indication: TYPE 2 DIABETES MELLITUS
     Dates: start: 20070612
  3. LANTUS [Concomitant]
  4. SIMVASTATIN [Concomitant]
  5. PLETAL [Concomitant]
  6. LYRICA [Concomitant]
  7. METOPROLOL SUCCINATE (TOPROL) [Concomitant]
  8. METFORMIN HCL [Concomitant]
  9. ESCITALOPRAM OXALATE [Concomitant]
  10. ESOMEPRAZOLE [Concomitant]
  11. POTASSIUM CHLORIDE (KALIUM CHLORATUM STREULI) [Concomitant]
  12. SULAR [Concomitant]
  13. CLOPIDOGREL (PLAVIX /01220701/) [Concomitant]
  14. HYDROCHLOROTHIAZIDE, LOSARTAN POTASSIUM (HYZAAR) [Concomitant]
  15. ASPIRIN [Concomitant]

REACTIONS (6)
  - BLOOD GLUCOSE INCREASED [None]
  - CONFUSIONAL STATE [None]
  - DIZZINESS [None]
  - GAIT DISTURBANCE [None]
  - URTICARIA [None]
  - VISUAL DISTURBANCE [None]
